FAERS Safety Report 5856980-0 (Version None)
Quarter: 2008Q3

REPORT INFORMATION
  Report Type: 
  Country: None (occurrence: None)
  Receive Date: 20080825
  Receipt Date: 20080819
  Transmission Date: 20090109
  Serious: Yes (Other)
  Sender: FDA-Public Use
  Company Number: NL-BOEHRINGER INGELHEIM GMBH, GERMANY-2008-BP-13045RO

PATIENT
  Age: 71 Year
  Sex: Male

DRUGS (9)
  1. FLUTICASONE PROPIONATE [Suspect]
     Route: 055
  2. DICLOFENAC [Concomitant]
  3. ACETYLSALICYLIC ACID SRT [Concomitant]
  4. OMEPRAZOLE [Concomitant]
  5. SALBUTAMOL [Concomitant]
  6. TEMAZEPAM [Concomitant]
  7. BISACODYL [Concomitant]
  8. HYDROQUININE [Concomitant]
  9. ULTRACITE [Concomitant]

REACTIONS (3)
  - FEELING COLD [None]
  - PAIN IN EXTREMITY [None]
  - PURPURA [None]
